FAERS Safety Report 4522460-8 (Version None)
Quarter: 2004Q4

REPORT INFORMATION
  Report Type: 
  Country: None (occurrence: None)
  Receive Date: 20041207
  Receipt Date: 20041123
  Transmission Date: 20050328
  Serious: Yes (Hospitalization)
  Sender: FDA-Public Use
  Company Number: US_0411108332

PATIENT
  Age: 31 Year
  Sex: Female

DRUGS (3)
  1. STRATTERA [Suspect]
     Indication: ATTENTION DEFICIT/HYPERACTIVITY DISORDER
     Dosage: 25 MG DAY
     Dates: start: 20041112, end: 20041115
  2. TRAZADONE (TRAZODONE) [Concomitant]
  3. LITHIUM [Concomitant]

REACTIONS (17)
  - BACK PAIN [None]
  - BACTERIAL INFECTION [None]
  - CEREBRAL INFARCTION [None]
  - CONFUSIONAL STATE [None]
  - DYSPNOEA [None]
  - DYSURIA [None]
  - ELECTROCARDIOGRAM ABNORMAL [None]
  - FEELING ABNORMAL [None]
  - HEPATITIS [None]
  - HEPATITIS B ANTIBODY POSITIVE [None]
  - MEDICATION ERROR [None]
  - NAUSEA [None]
  - NEURODERMATITIS [None]
  - NEUROFIBROMATOSIS [None]
  - PRURITUS [None]
  - URTICARIA [None]
  - VOMITING [None]
